FAERS Safety Report 7478956-2 (Version None)
Quarter: 2011Q2

REPORT INFORMATION
  Report Type: 
  Country: None (occurrence: None)
  Receive Date: 20110513
  Receipt Date: 20110505
  Transmission Date: 20111010
  Serious: Yes (Other)
  Sender: FDA-Public Use
  Company Number: US-US-EMD SERONO, INC.-230874J09USA

PATIENT
  Sex: Female

DRUGS (7)
  1. CALCIUM [Concomitant]
     Indication: OSTEOPOROSIS
     Route: 065
  2. DIOVAN HCT [Concomitant]
     Indication: HYPERTENSION
     Route: 065
  3. REBIF [Suspect]
     Indication: MULTIPLE SCLEROSIS
     Route: 058
     Dates: start: 20090430
  4. VERAPAMIL XR [Concomitant]
     Indication: HYPERTENSION
     Route: 065
  5. METOPROLOL SUCCINATE [Concomitant]
     Indication: HYPERTENSION
     Route: 065
  6. CLONIDINE [Concomitant]
     Indication: HYPERTENSION
     Route: 065
  7. BACLOFEN [Concomitant]
     Indication: MULTIPLE SCLEROSIS
     Route: 065

REACTIONS (3)
  - FATIGUE [None]
  - THYROID NEOPLASM [None]
  - INJECTION SITE NODULE [None]
